FAERS Safety Report 23552310 (Version 2)
Quarter: 2024Q1

REPORT INFORMATION
  Report Type: Spontaneous
  Country: US (occurrence: US)
  Receive Date: 20240222
  Receipt Date: 20240315
  Transmission Date: 20240410
  Serious: Yes (Hospitalization, Other)
  Sender: FDA-Public Use
  Company Number: US-HIKMA PHARMACEUTICALS USA INC.-US-H14001-24-01312

PATIENT
  Age: 68 Year
  Sex: Male
  Weight: 86.64 kg

DRUGS (7)
  1. CISPLATIN [Suspect]
     Active Substance: CISPLATIN
     Indication: B-cell lymphoma
     Dosage: 152 MILLIGRAM, SINGLE
     Route: 042
     Dates: start: 20231115, end: 20231115
  2. DEXAMETHASONE [Suspect]
     Active Substance: DEXAMETHASONE
     Indication: B-cell lymphoma
     Dosage: 40 MILLIGRAM, QD
     Route: 048
     Dates: start: 20231115
  3. EPCORITAMAB [Suspect]
     Active Substance: EPCORITAMAB
     Indication: B-cell lymphoma
     Dosage: 0.16 MILLIGRAM, SINGLE
     Route: 058
     Dates: start: 20231115, end: 20231115
  4. EPCORITAMAB [Suspect]
     Active Substance: EPCORITAMAB
     Dosage: 0.8 MILLIGRAM, SINGLE
     Route: 058
     Dates: start: 20231122, end: 20231122
  5. EPCORITAMAB [Suspect]
     Active Substance: EPCORITAMAB
     Dosage: 48 MILLIGRAM, WEEKLY
     Route: 058
     Dates: start: 20231129
  6. GEMCITABINE [Suspect]
     Active Substance: GEMCITABINE
     Indication: B-cell lymphoma
     Dosage: 2030 MILLIGRAM, WEEKLY
     Route: 042
     Dates: start: 20231115
  7. INSULIN NOS [Concomitant]
     Active Substance: INSULIN NOS
     Indication: Product used for unknown indication
     Dosage: UNK
     Dates: start: 20231130

REACTIONS (11)
  - Febrile neutropenia [Recovered/Resolved]
  - Cytokine release syndrome [Recovered/Resolved]
  - Pyrexia [Recovered/Resolved]
  - Chills [Recovered/Resolved]
  - Palpitations [Unknown]
  - Tachycardia [Unknown]
  - Neutropenia [Unknown]
  - Hypotension [Unknown]
  - Acute kidney injury [Recovered/Resolved]
  - Staphylococcal infection [Unknown]
  - Hyperglycaemia [Unknown]

NARRATIVE: CASE EVENT DATE: 20231129
